FAERS Safety Report 7255062-3 (Version None)
Quarter: 2011Q1

REPORT INFORMATION
  Report Type: 
  Country: None (occurrence: None)
  Receive Date: 20110129
  Receipt Date: 20100308
  Transmission Date: 20110831
  Serious: No
  Sender: FDA-Public Use
  Company Number: US-ABBOTT-10P-163-0630633-00

PATIENT
  Sex: Female
  Weight: 117.59 kg

DRUGS (6)
  1. KEPPRA [Concomitant]
     Indication: CONVULSION
  2. HUMIRA [Suspect]
     Indication: CROHN'S DISEASE
     Dosage: 160MG DOSE
     Dates: start: 20100222, end: 20100222
  3. ASACOL [Concomitant]
     Indication: CROHN'S DISEASE
  4. NEXIUM [Concomitant]
     Indication: GASTROOESOPHAGEAL REFLUX DISEASE
  5. TOPAMAX [Concomitant]
     Indication: CONVULSION
  6. HUMIRA [Suspect]
     Dosage: 80MG DOSE
     Dates: start: 20100304, end: 20100304

REACTIONS (2)
  - MYALGIA [None]
  - PAIN IN JAW [None]
